APPROVED DRUG PRODUCT: BUPRENORPHINE HYDROCHLORIDE AND NALOXONE HYDROCHLORIDE
Active Ingredient: BUPRENORPHINE HYDROCHLORIDE; NALOXONE HYDROCHLORIDE
Strength: EQ 4MG BASE;EQ 1MG BASE
Dosage Form/Route: FILM;BUCCAL, SUBLINGUAL
Application: A205954 | Product #002 | TE Code: AB
Applicant: ALVOGEN INC
Approved: Jan 24, 2019 | RLD: No | RS: No | Type: RX